FAERS Safety Report 10195934 (Version 2)
Quarter: 2014Q2

REPORT INFORMATION
  Report Type: Spontaneous
  Country: US (occurrence: US)
  Receive Date: 20140527
  Receipt Date: 20140610
  Transmission Date: 20141212
  Serious: Yes (Death, Hospitalization, Other)
  Sender: FDA-Public Use
  Company Number: US-AMGEN-USASP2014038243

PATIENT
  Age: 59 Year
  Sex: Female
  Weight: 79.37 kg

DRUGS (43)
  1. NEULASTA [Suspect]
     Indication: PRODUCT USED FOR UNKNOWN INDICATION
     Dosage: 6MG/0.6ML DAY 6 AFTER FULL WEEK CYCLE OF CHEMO
     Route: 058
  2. NEUPOGEN [Suspect]
     Indication: PRODUCT USED FOR UNKNOWN INDICATION
     Dosage: UNK
     Route: 065
     Dates: start: 20140125
  3. BLEOMYCIN [Suspect]
     Indication: OVARIAN CANCER
     Dosage: 30 UNIT, UNK
     Route: 065
     Dates: start: 20140113, end: 20140127
  4. BLEOMYCIN [Suspect]
     Dosage: 30 UNIT, UNK
     Route: 065
     Dates: start: 20140203, end: 20140218
  5. BLEOMYCIN [Suspect]
     Dosage: 30 UNIT, UNK
     Route: 065
     Dates: start: 20140324, end: 20140407
  6. ETOPOSIDE [Concomitant]
     Indication: OVARIAN CANCER
     Dosage: 180 MG, UNK
     Dates: start: 20140113, end: 20140117
  7. ETOPOSIDE [Concomitant]
     Dosage: 140 MG, UNK
     Dates: start: 20140203, end: 20140207
  8. ETOPOSIDE [Concomitant]
     Dosage: 140 MG, UNK
     Dates: start: 20140318, end: 20140321
  9. CISPLATIN [Concomitant]
     Indication: OVARIAN CANCER
     Dosage: 36 MG, UNK
     Dates: start: 20140113, end: 20140117
  10. CISPLATIN [Concomitant]
     Dosage: 28 MG, UNK
     Dates: start: 20140203, end: 20140207
  11. CISPLATIN [Concomitant]
     Dosage: 28 MG, UNK
     Dates: start: 20140318, end: 20140321
  12. BABY ASPIRIN [Concomitant]
     Dosage: 81 MG, UNK
  13. BISOPROLOL/HYDROCHLOROTHIAZID [Concomitant]
     Dosage: 5-6.25 MG
  14. CALCIUM CARBONATE [Concomitant]
     Dosage: UNK
  15. BETAMETHASONE [Concomitant]
     Dosage: UNK
  16. FLUNISOLIDE [Concomitant]
     Dosage: 0.025 %, UNK
  17. LIPITOR [Concomitant]
     Dosage: 10 MG, UNK
  18. LISINOPRIL [Concomitant]
     Dosage: 20 MG, UNK
  19. LISINOPRIL [Concomitant]
     Dosage: 40 MG, UNK
  20. METFORMIN [Concomitant]
     Dosage: 500 MG, BID
  21. SAXAGLIPTIN [Concomitant]
     Dosage: UNK
  22. SINGULAIR [Concomitant]
     Dosage: 10 MG, UNK
  23. IBUPROFEN [Concomitant]
     Dosage: 600 MG, UNK
  24. ZOFRAN                             /00955301/ [Concomitant]
     Indication: NAUSEA
     Dosage: 8 MG, AS NECESSARY
  25. PROBIOTICS                         /07325001/ [Concomitant]
     Dosage: UNK
  26. IMODIUM A-D [Concomitant]
     Dosage: 2 MG, UNK
  27. KLOR CON M20 [Concomitant]
     Dosage: 20 MEQ, UNK
  28. TUMS                               /00193601/ [Concomitant]
     Dosage: 500 MG, UNK
  29. SENOKOT                            /00142201/ [Concomitant]
     Dosage: 8.6 MG, UNK
  30. MILK OF MAGNESIA [Concomitant]
     Dosage: 7.75 %, UNK
  31. LORAZEPAM [Concomitant]
     Indication: NAUSEA
     Dosage: 1 MG, AS NECESSARY
     Route: 048
  32. LORAZEPAM [Concomitant]
     Indication: ANXIETY
  33. LORAZEPAM [Concomitant]
     Indication: INSOMNIA
  34. MAGNESIUM [Concomitant]
     Dosage: 400 MG, QD
     Route: 048
  35. EMEND                              /01627301/ [Concomitant]
     Dosage: 80 MG, UNK
  36. EMEND                              /01627301/ [Concomitant]
     Dosage: 125 MG, UNK
  37. PROMETHEGAN [Concomitant]
     Dosage: 25 MG, UNK
  38. ONGLYZA [Concomitant]
     Dosage: 5 MG, UNK
  39. CALCIUM 500+D [Concomitant]
     Dosage: 500-400 MG
  40. FISH OIL [Concomitant]
     Dosage: 1000 MG, UNK
  41. CLONAZEPAM [Concomitant]
     Dosage: 0.5 MG, UNK
  42. CIPRO                              /00697201/ [Concomitant]
     Dosage: 500 MG, UNK
  43. NYSTATIN [Concomitant]
     Dosage: 100000 UNIT/GM APPLY TO AFFECTED 1 AREA

REACTIONS (12)
  - Pulmonary fibrosis [Fatal]
  - Pulmonary toxicity [Unknown]
  - Pneumonia [Unknown]
  - Acute respiratory failure [Unknown]
  - Diarrhoea [Unknown]
  - Febrile neutropenia [Unknown]
  - Hyponatraemia [Unknown]
  - Abdominal pain [Unknown]
  - Haemoglobin abnormal [Unknown]
  - Haematocrit abnormal [Unknown]
  - White blood cell count decreased [Unknown]
  - Seasonal allergy [Unknown]
